FAERS Safety Report 14975428 (Version 1)
Quarter: 2018Q2

REPORT INFORMATION
  Report Type: Spontaneous
  Country: US (occurrence: US)
  Receive Date: 20180515
  Receipt Date: 20180515
  Transmission Date: 20180711
  Serious: Yes (Hospitalization)
  Sender: FDA-Public Use
  Company Number: None

PATIENT
  Sex: Male
  Weight: 102.6 kg

DRUGS (5)
  1. BORTEZOMIB [Suspect]
     Active Substance: BORTEZOMIB
  2. DEXAMETHASONE. [Suspect]
     Active Substance: DEXAMETHASONE
     Dates: end: 20180511
  3. BORTEZOMIB [Suspect]
     Active Substance: BORTEZOMIB
  4. LENALIDOMIDE [Suspect]
     Active Substance: LENALIDOMIDE
     Dates: end: 20180511
  5. BORTEZOMIB [Suspect]
     Active Substance: BORTEZOMIB
     Dates: end: 20180511

REACTIONS (5)
  - Malaise [None]
  - Vision blurred [None]
  - Lymphoedema [None]
  - Night blindness [None]
  - Fatigue [None]

NARRATIVE: CASE EVENT DATE: 20180511
